FAERS Safety Report 14984731 (Version 3)
Quarter: 2018Q3

REPORT INFORMATION
  Report Type: Report from Study
  Country: None (occurrence: JP)
  Receive Date: 20180607
  Receipt Date: 20180731
  Transmission Date: 20181010
  Serious: Yes (Disabling)
  Sender: FDA-Public Use
  Company Number: JP-ABBVIE-18P-087-2372154-00

PATIENT
  Age: 77 Year
  Sex: Male
  Weight: 52.3 kg

DRUGS (47)
  1. VENETOCLAX. [Suspect]
     Active Substance: VENETOCLAX
     Route: 048
     Dates: start: 20171225, end: 20171225
  2. VENETOCLAX. [Suspect]
     Active Substance: VENETOCLAX
     Route: 048
     Dates: start: 20180705, end: 20180705
  3. CYTARABINE. [Suspect]
     Active Substance: CYTARABINE
     Dosage: DAYS 1?10 OF EACH 28?DAY CYCLE
     Route: 058
     Dates: start: 20180417, end: 20180517
  4. ESOMEPRAZOLE [Concomitant]
     Active Substance: ESOMEPRAZOLE
     Indication: GASTRITIS PROPHYLAXIS
     Route: 048
     Dates: start: 20171211, end: 20180530
  5. BFLULD [Concomitant]
     Route: 042
     Dates: start: 20180603, end: 20180603
  6. CLOSTRIDIUM BUTYRICUM MIYAIRI [Concomitant]
     Indication: CONSTIPATION
     Route: 048
     Dates: start: 20171211, end: 20180530
  7. HYDROXYZINE HYDROCHLORIDE. [Concomitant]
     Active Substance: HYDROXYZINE HYDROCHLORIDE
     Indication: ALLERGY PROPHYLAXIS
  8. SUMILU STICK [Concomitant]
     Indication: POLYMYALGIA RHEUMATICA
     Dosage: 1 APPLICATION
     Route: 061
     Dates: start: 20180510, end: 20180530
  9. POTASSIUM L?ASPARTATE [Concomitant]
     Active Substance: POTASSIUM ASPARTATE ANHYDROUS
     Indication: HYPOKALAEMIA
     Route: 048
     Dates: start: 20180524, end: 20180530
  10. CEFEPIME [Concomitant]
     Active Substance: CEFEPIME HYDROCHLORIDE
     Indication: INFECTION PROPHYLAXIS
     Route: 042
     Dates: start: 20180529, end: 20180530
  11. VENETOCLAX. [Suspect]
     Active Substance: VENETOCLAX
     Route: 048
     Dates: start: 20171226, end: 20180111
  12. VENETOCLAX. [Suspect]
     Active Substance: VENETOCLAX
     Route: 048
     Dates: start: 20180315, end: 20180529
  13. VENETOCLAX. [Suspect]
     Active Substance: VENETOCLAX
     Route: 048
     Dates: start: 20180620, end: 20180620
  14. FUROSEMIDE. [Concomitant]
     Active Substance: FUROSEMIDE
     Indication: URINE OUTPUT DECREASED
     Route: 048
     Dates: start: 20171211, end: 20180530
  15. PREDNISOLONE. [Concomitant]
     Active Substance: PREDNISOLONE
     Route: 042
     Dates: start: 20180531
  16. DENOSALIN 1 [Concomitant]
     Route: 042
     Dates: start: 20180602
  17. FUROSEMIDE. [Concomitant]
     Active Substance: FUROSEMIDE
     Indication: RENAL IMPAIRMENT
     Route: 042
     Dates: start: 20180531, end: 20180531
  18. HYDROXYZINE HYDROCHLORIDE. [Concomitant]
     Active Substance: HYDROXYZINE HYDROCHLORIDE
     Indication: PLATELET TRANSFUSION
     Route: 042
     Dates: start: 20180524, end: 20180618
  19. BFLULD [Concomitant]
     Indication: ASTHENIA
     Route: 042
     Dates: start: 20180524, end: 20180601
  20. BFLULD [Concomitant]
     Route: 042
     Dates: start: 20180604
  21. DENOSALIN 1 [Concomitant]
     Indication: ASTHENIA
     Route: 042
     Dates: start: 20180531, end: 20180601
  22. VEEN?D [Concomitant]
     Active Substance: DEXTROSE
     Dates: start: 20180530
  23. VENETOCLAX. [Suspect]
     Active Substance: VENETOCLAX
     Route: 048
     Dates: start: 20180112, end: 20180314
  24. FUROSEMIDE. [Concomitant]
     Active Substance: FUROSEMIDE
     Indication: HYPERTENSION
     Route: 048
     Dates: start: 20171211, end: 20180530
  25. CARBAZOCHROME SODIUM SULFONATE HYDRATE [Concomitant]
     Indication: HAEMORRHAGE PROPHYLAXIS
     Route: 042
     Dates: start: 20180522, end: 20180530
  26. TRANEXAMIC ACID. [Concomitant]
     Active Substance: TRANEXAMIC ACID
     Indication: BRONCHITIS
     Route: 042
     Dates: start: 20180522, end: 20180530
  27. ANTITHROMBIN GAMMA [Concomitant]
     Indication: PROPHYLAXIS
     Route: 042
     Dates: start: 20180604, end: 20180604
  28. GLUCOSE [Concomitant]
     Active Substance: DEXTROSE
     Indication: PROPHYLAXIS
     Route: 042
     Dates: start: 20180605, end: 20180605
  29. VENETOCLAX. [Suspect]
     Active Substance: VENETOCLAX
     Route: 048
     Dates: start: 20180628, end: 20180702
  30. CYTARABINE. [Suspect]
     Active Substance: CYTARABINE
     Indication: ACUTE MYELOID LEUKAEMIA
     Dosage: DAYS 1?10 OF EACH 28?DAY CYCLE
     Route: 058
     Dates: start: 20171219, end: 20180415
  31. SULFAMETHOXAZOLE TRIMETHOPRIM [Concomitant]
     Active Substance: SULFAMETHOXAZOLE\TRIMETHOPRIM
     Indication: INFECTION PROPHYLAXIS
     Route: 048
     Dates: start: 20171214, end: 20180530
  32. SOLDEM 3A [Concomitant]
     Active Substance: CARBOHYDRATES\POTASSIUM CHLORIDE\SODIUM CHLORIDE\SODIUM LACTATE
     Indication: FLUID REPLACEMENT
  33. NAFAMOSTAT MESILATE [Concomitant]
     Active Substance: NAFAMOSTAT MESYLATE
     Indication: PROPHYLAXIS
     Route: 042
     Dates: start: 20180605, end: 20180605
  34. CYTARABINE. [Suspect]
     Active Substance: CYTARABINE
     Dosage: DAYS 1?10 OF EACH 28?DAY CYCLE
     Route: 058
     Dates: start: 20180618, end: 20180627
  35. BROTIZOLAM [Concomitant]
     Active Substance: BROTIZOLAM
     Indication: INSOMNIA
     Route: 048
     Dates: start: 20171211, end: 20180529
  36. PREDNISOLONE. [Concomitant]
     Active Substance: PREDNISOLONE
     Indication: POLYMYALGIA RHEUMATICA
     Route: 048
     Dates: start: 20180517, end: 20180530
  37. BFLULD [Concomitant]
     Route: 042
     Dates: start: 20180602, end: 20180602
  38. SOLDEM 3A [Concomitant]
     Active Substance: CARBOHYDRATES\POTASSIUM CHLORIDE\SODIUM CHLORIDE\SODIUM LACTATE
     Indication: ASTHENIA
     Route: 042
     Dates: start: 20180522, end: 20180530
  39. OMEPRAZOLE. [Concomitant]
     Active Substance: OMEPRAZOLE
     Indication: GASTRITIS PROPHYLAXIS
     Route: 042
     Dates: start: 20180531, end: 20180615
  40. VENETOCLAX. [Suspect]
     Active Substance: VENETOCLAX
     Indication: ACUTE MYELOID LEUKAEMIA
     Route: 048
     Dates: start: 20171219, end: 20171221
  41. VENETOCLAX. [Suspect]
     Active Substance: VENETOCLAX
     Route: 048
     Dates: start: 20171222, end: 20171224
  42. VENETOCLAX. [Suspect]
     Active Substance: VENETOCLAX
     Route: 048
     Dates: start: 20180625, end: 20180627
  43. VENETOCLAX. [Suspect]
     Active Substance: VENETOCLAX
     Route: 048
     Dates: start: 20180703, end: 20180703
  44. VENETOCLAX. [Suspect]
     Active Substance: VENETOCLAX
     Route: 048
     Dates: start: 20180704, end: 20180704
  45. FEBUXOSTAT. [Concomitant]
     Active Substance: FEBUXOSTAT
     Indication: PROPHYLAXIS
     Route: 048
     Dates: start: 20171211, end: 20171211
  46. ACETAMINOPHEN. [Concomitant]
     Active Substance: ACETAMINOPHEN
     Indication: POLYMYALGIA RHEUMATICA
     Route: 048
     Dates: start: 20180318, end: 20180530
  47. VEEN?D [Concomitant]
     Active Substance: DEXTROSE
     Indication: ASTHENIA
     Dates: start: 20180524, end: 20180529

REACTIONS (1)
  - Cholecystitis acute [Recovered/Resolved]

NARRATIVE: CASE EVENT DATE: 20180529
